FAERS Safety Report 20627584 (Version 1)
Quarter: 2022Q1

REPORT INFORMATION
  Report Type: Spontaneous
  Country: GB (occurrence: GB)
  Receive Date: 20220323
  Receipt Date: 20220323
  Transmission Date: 20220423
  Serious: Yes (Other)
  Sender: FDA-Public Use
  Company Number: GB-UCBSA-2022016020

PATIENT
  Age: 3 Year
  Sex: Male

DRUGS (4)
  1. VIMPAT [Suspect]
     Active Substance: LACOSAMIDE
     Indication: Early infantile epileptic encephalopathy with burst-suppression
     Dosage: UNK
  2. VALPROATE SODIUM [Suspect]
     Active Substance: VALPROATE SODIUM
     Indication: Early infantile epileptic encephalopathy with burst-suppression
     Dosage: UNK
  3. CLOBAZAM [Suspect]
     Active Substance: CLOBAZAM
     Indication: Early infantile epileptic encephalopathy with burst-suppression
     Dosage: UNK
  4. PAMIDRONATE [Concomitant]
     Active Substance: PAMIDRONATE DISODIUM
     Indication: Product used for unknown indication
     Dosage: UNK

REACTIONS (7)
  - Osteoporosis [Unknown]
  - Femur fracture [Unknown]
  - Tibia fracture [Unknown]
  - Foot fracture [Unknown]
  - Rib fracture [Unknown]
  - Spinal fracture [Unknown]
  - Product use in unapproved indication [Unknown]
